FAERS Safety Report 23073128 (Version 1)
Quarter: 2023Q4

REPORT INFORMATION
  Report Type: Spontaneous
  Country: JP (occurrence: JP)
  Receive Date: 20231017
  Receipt Date: 20231017
  Transmission Date: 20240110
  Serious: Yes (Death, Hospitalization)
  Sender: FDA-Public Use
  Company Number: JP-BAYER-2023A141071

PATIENT
  Age: 78 Year
  Sex: Male

DRUGS (1)
  1. RIVAROXABAN [Suspect]
     Active Substance: RIVAROXABAN
     Indication: Arrhythmia
     Route: 048

REACTIONS (4)
  - Cardiac arrest [Fatal]
  - Pharyngeal haematoma [Fatal]
  - Hypoxic-ischaemic encephalopathy [Fatal]
  - Off label use [Unknown]
